FAERS Safety Report 11765009 (Version 1)
Quarter: 2015Q4

REPORT INFORMATION
  Report Type: Spontaneous
  Country: US (occurrence: US)
  Receive Date: 20151120
  Receipt Date: 20151120
  Transmission Date: 20160304
  Serious: Yes (Other)
  Sender: FDA-Public Use
  Company Number: US-ELI_LILLY_AND_COMPANY-US201310001779

PATIENT
  Sex: Male

DRUGS (1)
  1. FORTEO [Suspect]
     Active Substance: TERIPARATIDE
     Indication: OSTEOPOROSIS

REACTIONS (7)
  - Feeling abnormal [Unknown]
  - Osteosarcoma [Unknown]
  - Fatigue [Unknown]
  - Feeling of despair [Unknown]
  - Dizziness [Unknown]
  - Flushing [Unknown]
  - Decreased appetite [Unknown]
